FAERS Safety Report 11944645 (Version 1)
Quarter: 2016Q1

REPORT INFORMATION
  Report Type: Spontaneous
  Country: CA (occurrence: CA)
  Receive Date: 20160125
  Receipt Date: 20160125
  Transmission Date: 20160526
  Serious: Yes (Other)
  Sender: FDA-Public Use
  Company Number: CA-TEVA-627151ACC

PATIENT
  Age: 53 Year
  Sex: Female
  Weight: 68 kg

DRUGS (1)
  1. CIPROFLOXACIN. [Suspect]
     Active Substance: CIPROFLOXACIN
     Indication: URINARY TRACT INFECTION
     Dosage: 1000 MILLIGRAM DAILY;
     Route: 048

REACTIONS (20)
  - Ligament disorder [Recovering/Resolving]
  - Dyspepsia [Recovering/Resolving]
  - Hypoaesthesia [Recovering/Resolving]
  - Tendon disorder [Recovering/Resolving]
  - Tendon pain [Recovering/Resolving]
  - Chest discomfort [Recovering/Resolving]
  - Tremor [Recovering/Resolving]
  - Mitochondrial cytopathy [Recovering/Resolving]
  - Back pain [Recovering/Resolving]
  - Cardiac disorder [Recovering/Resolving]
  - Blood magnesium decreased [Recovering/Resolving]
  - Fatigue [Recovering/Resolving]
  - Hypertension [Recovering/Resolving]
  - Lymphadenopathy [Recovering/Resolving]
  - Skin exfoliation [Recovering/Resolving]
  - Depression [Recovering/Resolving]
  - Muscle tightness [Recovering/Resolving]
  - Palpitations [Recovering/Resolving]
  - Paraesthesia [Recovering/Resolving]
  - Tendonitis [Recovering/Resolving]
